FAERS Safety Report 9278747 (Version 1)
Quarter: 2013Q2

REPORT INFORMATION
  Report Type: Spontaneous
  Country: US (occurrence: US)
  Receive Date: 20130508
  Receipt Date: 20130508
  Transmission Date: 20140414
  Serious: No
  Sender: FDA-Public Use
  Company Number: US-ASTRAZENECA-2013SE30884

PATIENT
  Age: 86 Year
  Sex: Male
  Weight: 90.7 kg

DRUGS (15)
  1. SYMBICORT [Suspect]
     Dosage: 160 MCG 2 PUFFS TWO TIMES A DAY
     Route: 055
     Dates: start: 201302
  2. PREDNISONE [Suspect]
     Route: 048
  3. DOXAZOSINE [Concomitant]
     Indication: CARDIOVASCULAR DISORDER
     Route: 048
     Dates: start: 2011
  4. ASPIRIN [Concomitant]
     Indication: CARDIOVASCULAR EVENT PROPHYLAXIS
     Route: 048
     Dates: start: 2011
  5. GLYBURIDE [Concomitant]
     Indication: GLUCOSE TOLERANCE IMPAIRED
     Route: 048
  6. MULTIVITAMIN [Concomitant]
  7. VITAMIN B12 [Concomitant]
     Route: 048
  8. AMLODIPINE [Concomitant]
     Indication: CARDIOVASCULAR DISORDER
     Route: 048
     Dates: start: 2011
  9. VALSARTAN [Concomitant]
     Indication: CARDIOVASCULAR DISORDER
     Route: 048
     Dates: start: 2011
  10. CALCITRIOL [Concomitant]
     Route: 048
     Dates: start: 2011
  11. FUROSEMIDE [Concomitant]
     Indication: CARDIAC FAILURE
     Route: 048
     Dates: start: 2011
  12. KCL [Concomitant]
     Indication: MUSCLE SPASMS
     Dosage: UNKNOWN DAILY
     Route: 048
     Dates: start: 2011
  13. PROAIR [Concomitant]
     Indication: RESPIRATORY DISORDER
     Dosage: AS REQUIRED
     Route: 055
  14. ADVAIR [Concomitant]
  15. SPIRIVA [Concomitant]

REACTIONS (7)
  - Dyspnoea exertional [Unknown]
  - Thinking abnormal [Recovered/Resolved]
  - Dysgeusia [Unknown]
  - Dry mouth [Unknown]
  - Breath odour [Unknown]
  - Throat irritation [Unknown]
  - Blood glucose increased [Unknown]
